FAERS Safety Report 5525784-0 (Version None)
Quarter: 2007Q4

REPORT INFORMATION
  Report Type: 
  Country: None (occurrence: None)
  Receive Date: 20071120
  Receipt Date: 20071109
  Transmission Date: 20080405
  Serious: Yes (Hospitalization, Other)
  Sender: FDA-Public Use
  Company Number: 230119J07USA

PATIENT
  Age: 32 Year
  Sex: Female

DRUGS (2)
  1. REBIF [Suspect]
     Indication: MULTIPLE SCLEROSIS
     Dates: end: 20070110
  2. BETASERON [Suspect]
     Dosage: 250 MCG

REACTIONS (3)
  - DRUG EXPOSURE DURING PREGNANCY [None]
  - HYSTERECTOMY [None]
  - PRECANCEROUS CELLS PRESENT [None]
